FAERS Safety Report 24011670 (Version 1)
Quarter: 2024Q2

REPORT INFORMATION
  Report Type: Spontaneous
  Country: US (occurrence: None)
  Receive Date: 20240625
  Receipt Date: 20240625
  Transmission Date: 20240717
  Serious: Yes (Death)
  Sender: FDA-Public Use
  Company Number: None

PATIENT
  Age: 69 Year
  Sex: Female
  Weight: 42.3 kg

DRUGS (12)
  1. REVLIMID [Suspect]
     Active Substance: LENALIDOMIDE
     Indication: Plasma cell myeloma
     Dosage: FREQUENCY : DAILY;?
     Route: 048
     Dates: start: 20231025, end: 20240507
  2. SEVELAMER [Concomitant]
  3. ZOLOFT [Concomitant]
  4. Pregablin [Concomitant]
  5. PANTOPRAZOLE [Concomitant]
  6. OXYCODONE [Concomitant]
  7. Zofran [Concomitant]
  8. LEVOTHYROXINE [Concomitant]
  9. GABAPENTIN [Concomitant]
  10. FENTANYL PATCH [Concomitant]
  11. DEXAMETHASONE [Concomitant]
  12. CLONAZEPAM [Concomitant]

REACTIONS (1)
  - Death [None]
